FAERS Safety Report 11857629 (Version 1)
Quarter: 2015Q4

REPORT INFORMATION
  Report Type: Spontaneous
  Country: US (occurrence: None)
  Receive Date: 20151221
  Receipt Date: 20151221
  Transmission Date: 20160305
  Serious: Yes (Other)
  Sender: FDA-Public Use
  Company Number: None

PATIENT
  Age: 55 Year
  Sex: Female
  Weight: 86.18 kg

DRUGS (5)
  1. CALCIUM [Concomitant]
     Active Substance: CALCIUM
  2. TOPRYL XL [Concomitant]
  3. NUMBING MOUTHWASH MAGIC MOUTHWASH [Suspect]
     Active Substance: DIPHENHYDRAMINE HYDROCHLORIDE\LIDOCAINE HYDROCHLORIDE\NYSTATIN
     Indication: PHARYNGITIS STREPTOCOCCAL
     Dosage: 2 TESASPOONFULS, EVERY 4 HOURS, TAKEN BY MOUTH
     Route: 048
     Dates: start: 20151219, end: 20151220
  4. BABY ASPIRIN [Concomitant]
     Active Substance: ASPIRIN
  5. MELOXICAM. [Concomitant]
     Active Substance: MELOXICAM

REACTIONS (3)
  - Sensation of foreign body [None]
  - Pharyngeal hypoaesthesia [None]
  - Choking [None]

NARRATIVE: CASE EVENT DATE: 20151219
